FAERS Safety Report 11749702 (Version 2)
Quarter: 2015Q4

REPORT INFORMATION
  Report Type: Report from Study
  Country: US (occurrence: US)
  Receive Date: 20151118
  Receipt Date: 20151201
  Transmission Date: 20160304
  Serious: No
  Sender: FDA-Public Use
  Company Number: US-AMGEN-USASL2015117802

PATIENT
  Age: 46 Year
  Sex: Female
  Weight: 73.92 kg

DRUGS (5)
  1. VITAMIN D                          /00107901/ [Concomitant]
     Active Substance: ERGOCALCIFEROL
     Dosage: UNK
  2. ENBREL [Suspect]
     Active Substance: ETANERCEPT
     Indication: RHEUMATOID ARTHRITIS
     Dosage: 50 MG, QWK
     Route: 058
     Dates: start: 20151103
  3. MELOXICAM. [Concomitant]
     Active Substance: MELOXICAM
     Dosage: UNK
  4. ENBREL [Suspect]
     Active Substance: ETANERCEPT
     Indication: SYSTEMIC LUPUS ERYTHEMATOSUS
  5. METHOTREXATE [Concomitant]
     Active Substance: METHOTREXATE
     Dosage: UNK

REACTIONS (5)
  - Off label use [Unknown]
  - Headache [Recovered/Resolved]
  - Injection site pain [Recovered/Resolved]
  - Injection site reaction [Recovered/Resolved]
  - Confusional state [Unknown]

NARRATIVE: CASE EVENT DATE: 201511
